FAERS Safety Report 24659819 (Version 2)
Quarter: 2024Q4

REPORT INFORMATION
  Report Type: Spontaneous
  Country: US (occurrence: US)
  Receive Date: 20241125
  Receipt Date: 20241219
  Transmission Date: 20250115
  Serious: Yes (Hospitalization)
  Sender: NEUROCRINE BIOSCIENCES
  Company Number: US-NEUROCRINE BIOSCIENCES INC.-2024NBI11321

PATIENT
  Age: 43 Year
  Sex: Male

DRUGS (20)
  1. INGREZZA [Suspect]
     Active Substance: VALBENAZINE
     Indication: Tardive dyskinesia
     Dosage: 80 MILLIGRAM, QD
     Route: 048
     Dates: start: 20240108
  2. RISPERDAL [Suspect]
     Active Substance: RISPERIDONE
     Indication: Schizoaffective disorder
     Dosage: 1 MILLIGRAM, QD
     Route: 065
  3. OLANZAPINE [Suspect]
     Active Substance: OLANZAPINE
     Indication: Psychotic disorder
     Dosage: 20 MILLIGRAM
     Route: 065
  4. BACLOFEN [Concomitant]
     Active Substance: BACLOFEN
     Indication: Dystonia
     Dosage: 10 MILLIGRAM, TID
  5. DIOSMIN [Concomitant]
     Active Substance: DIOSMIN
     Dosage: 15 MILLIGRAM, QD
  6. EFFEXOR [Concomitant]
     Active Substance: VENLAFAXINE HYDROCHLORIDE
     Dosage: 300 MILLIGRAM
  7. LAMICTAL [Concomitant]
     Active Substance: LAMOTRIGINE
     Indication: Seizure prophylaxis
     Dosage: 200 MILLIGRAM, BID
  8. LITHIUM CARBONATE [Concomitant]
     Active Substance: LITHIUM CARBONATE
     Dosage: 600 MILLIGRAM, BID
  9. EZETIMIBE [Concomitant]
     Active Substance: EZETIMIBE
     Indication: Blood cholesterol increased
     Dosage: 10 MILLIGRAM, QD
  10. FENOFIBRATE [Concomitant]
     Active Substance: FENOFIBRATE
     Dosage: 134 MILLIGRAM, QD
  11. LEVOTHYROXINE [Concomitant]
     Active Substance: LEVOTHYROXINE
     Indication: Thyroid disorder
     Dosage: 50 MICROGRAM, QD
  12. LABETALOL [Concomitant]
     Active Substance: LABETALOL
     Indication: Hypertension
     Dosage: 200 MILLIGRAM
  13. VASCEPA [Concomitant]
     Active Substance: ICOSAPENT ETHYL
     Dosage: 1 GRAM, BID
  14. NAC N ACETYL L CYSTEINE [Concomitant]
     Dosage: 600 MILLIGRAM, BID
  15. PROBIOTICS NOS [Concomitant]
     Active Substance: PROBIOTICS NOS
  16. CENTRUM ADULTS [Concomitant]
     Dosage: QD
  17. VITAMIN D3 [Concomitant]
     Active Substance: CHOLECALCIFEROL
     Dosage: 1000 INTERNATIONAL UNIT, BID
  18. VIT E [TOCOPHEROL] [Concomitant]
     Dosage: 400 INTERNATIONAL UNIT, QD
  19. VITAMIN C [Concomitant]
     Active Substance: ASCORBIC ACID
     Dosage: 500 MILLIGRAM, QD
  20. VITAMIN B12 [Concomitant]
     Active Substance: CYANOCOBALAMIN
     Dosage: 100 MICROGRAM, QD

REACTIONS (4)
  - Psychotic disorder [Recovering/Resolving]
  - Drug interaction [Unknown]
  - Torticollis [Unknown]
  - Weight increased [Unknown]
